FAERS Safety Report 19816816 (Version 1)
Quarter: 2021Q3

REPORT INFORMATION
  Report Type: Spontaneous
  Country: HU (occurrence: HU)
  Receive Date: 20210910
  Receipt Date: 20210910
  Transmission Date: 20211014
  Serious: Yes (Hospitalization, Other)
  Sender: FDA-Public Use
  Company Number: HU-TEVA-2021-HU-1950289

PATIENT
  Age: 70 Year
  Sex: Female

DRUGS (11)
  1. ALLOPURINOL. [Suspect]
     Active Substance: ALLOPURINOL
     Indication: PRODUCT USED FOR UNKNOWN INDICATION
     Dosage: UNKTHERAPY START DATE :THERAPY END DATE :ASKU
     Route: 065
  2. EPLERENONE. [Suspect]
     Active Substance: EPLERENONE
     Indication: PRODUCT USED FOR UNKNOWN INDICATION
     Dosage: UNK
     Route: 065
  3. CARVEDILOL. [Suspect]
     Active Substance: CARVEDILOL
     Indication: PRODUCT USED FOR UNKNOWN INDICATION
     Dosage: 25 MILLIGRAM DAILY; 12.5 MG, BIDTHERAPY START DATE :THERAPY END DATE :ASKUUNIT DOSE :25MILLIGRAM
     Route: 065
  4. ENTRESTO [Suspect]
     Active Substance: SACUBITRIL\VALSARTAN
     Dosage: UNKTHERAPY END DATE :ASKU
     Route: 065
     Dates: start: 2020
  5. ACETYLSALICYLIC ACID [Suspect]
     Active Substance: ASPIRIN
     Indication: PRODUCT USED FOR UNKNOWN INDICATION
     Dosage: UNKTHERAPY START DATE:THERAPY END DATE:ASKU
     Route: 065
  6. VALSARTAN. [Suspect]
     Active Substance: VALSARTAN
     Indication: PRODUCT USED FOR UNKNOWN INDICATION
     Dosage: 80 MILLIGRAM DAILY; 80 MG, QDTHERAPY START DATE:THERAPY END DATE :ASKU
     Route: 065
  7. ENTRESTO [Suspect]
     Active Substance: SACUBITRIL\VALSARTAN
     Dosage: BID (49 / 51 MG)
     Route: 065
     Dates: start: 2020, end: 2020
  8. TRIMETAZIDINE [Suspect]
     Active Substance: TRIMETAZIDINE
     Indication: PRODUCT USED FOR UNKNOWN INDICATION
     Dosage: 80 MILLIGRAM DAILY; 80 MG, QDTHERAPY START DATE:THERAPY END DATE :ASKU
     Route: 065
  9. NITROGLYCERIN. [Concomitant]
     Active Substance: NITROGLYCERIN
     Indication: PRODUCT USED FOR UNKNOWN INDICATION
     Dosage: UNK
     Route: 065
  10. CLOPIDOGREL [Suspect]
     Active Substance: CLOPIDOGREL BISULFATE
     Indication: PRODUCT USED FOR UNKNOWN INDICATION
     Dosage: UNK
     Route: 065
  11. ENTRESTO [Suspect]
     Active Substance: SACUBITRIL\VALSARTAN
     Indication: PRODUCT USED FOR UNKNOWN INDICATION
     Dosage: BID (24/ 26 MG)
     Route: 065
     Dates: end: 2020

REACTIONS (21)
  - Subdural haemorrhage [Unknown]
  - Stenosis [Unknown]
  - Oedema peripheral [Recovered/Resolved]
  - Hyperkalaemia [Unknown]
  - Atrial fibrillation [Recovered/Resolved]
  - Hypertension [Unknown]
  - Pre-eclampsia [Unknown]
  - Cardiomegaly [Unknown]
  - Drug hypersensitivity [Unknown]
  - Hydrothorax [Unknown]
  - Cardiac failure [Unknown]
  - Tachypnoea [Unknown]
  - Coronary artery occlusion [Unknown]
  - Loss of consciousness [Recovered/Resolved]
  - Myocardial infarction [Unknown]
  - Subarachnoid haemorrhage [Unknown]
  - Dyspnoea [Unknown]
  - Gastrointestinal haemorrhage [Unknown]
  - Left ventricular dysfunction [Unknown]
  - Arthritis [Unknown]
  - Chest pain [Recovered/Resolved]

NARRATIVE: CASE EVENT DATE: 2019
